FAERS Safety Report 15041263 (Version 3)
Quarter: 2025Q2

REPORT INFORMATION
  Report Type: Spontaneous
  Country: US (occurrence: US)
  Receive Date: 20180621
  Receipt Date: 20250501
  Transmission Date: 20250717
  Serious: Yes (Hospitalization)
  Sender: ROCHE
  Company Number: US-ROCHE-2139879

PATIENT
  Age: 78 Year
  Sex: Female
  Weight: 49.8 kg

DRUGS (20)
  1. BONIVA [Suspect]
     Active Substance: IBANDRONATE SODIUM
     Indication: Product used for unknown indication
     Route: 065
     Dates: start: 20111228
  2. BONIVA [Suspect]
     Active Substance: IBANDRONATE SODIUM
     Route: 065
     Dates: start: 20110804
  3. TYLENOL [Concomitant]
     Active Substance: ACETAMINOPHEN
     Dates: start: 20120618
  4. TYLENOL [Concomitant]
     Active Substance: ACETAMINOPHEN
     Dosage: TAKE 1 TABLET BY MOUTH EVERY 8 HOURS AS NEEDED
     Dates: start: 20111212
  5. CICLOPIROX [Concomitant]
     Active Substance: CICLOPIROX
     Dates: start: 20120426
  6. CICLOPIROX [Concomitant]
     Active Substance: CICLOPIROX
     Dates: start: 20110902
  7. PRAVASTATIN SODIUM [Concomitant]
     Active Substance: PRAVASTATIN SODIUM
     Dates: start: 20120329
  8. SIMETHICONE (DIMETHICONE) [Concomitant]
     Active Substance: DIMETHICONE
     Dosage: CHEW AND SWALLOW 1 TABLET 3 TIMES PER DAY
     Dates: start: 20120327
  9. SIMETHICONE (DIMETHICONE) [Concomitant]
     Active Substance: DIMETHICONE
     Dates: start: 20110722
  10. METAMUCIL [Concomitant]
     Active Substance: PLANTAGO SEED
     Dates: start: 20120301
  11. CLINPRO 5000 [Concomitant]
     Active Substance: SODIUM FLUORIDE
     Dates: start: 20110803
  12. METAMUCIL [Concomitant]
     Active Substance: PLANTAGO SEED
     Dates: start: 20111020
  13. TRANXENE T-TAB [Concomitant]
     Active Substance: CLORAZEPATE DIPOTASSIUM
     Dates: start: 20111020
  14. VOLTAREN [Concomitant]
     Active Substance: DICLOFENAC SODIUM
     Dates: start: 20110930
  15. LOPERAMIDE [Concomitant]
     Active Substance: LOPERAMIDE
     Dates: start: 20110907
  16. CALCIUM CARBONATE\VITAMIN D [Concomitant]
     Active Substance: CALCIUM CARBONATE\VITAMIN D
     Dates: start: 20110804
  17. MOTRIN [Concomitant]
     Active Substance: IBUPROFEN
     Dates: start: 20120526
  18. DILTIAZEM [Concomitant]
     Active Substance: DILTIAZEM
  19. AMIODARONE [Concomitant]
     Active Substance: AMIODARONE
  20. ASPIRIN [Concomitant]
     Active Substance: ASPIRIN

REACTIONS (3)
  - Femur fracture [Unknown]
  - Asthenia [Unknown]
  - Fracture displacement [Unknown]
